FAERS Safety Report 23531553 (Version 1)
Quarter: 2024Q1

REPORT INFORMATION
  Report Type: Spontaneous
  Country: FR (occurrence: FR)
  Receive Date: 20240216
  Receipt Date: 20240216
  Transmission Date: 20240410
  Serious: Yes (Death)
  Sender: FDA-Public Use
  Company Number: None

PATIENT
  Age: 51 Year
  Sex: Male
  Weight: 100 kg

DRUGS (12)
  1. AMOXICILLIN\CLAVULANATE POTASSIUM [Suspect]
     Active Substance: AMOXICILLIN\CLAVULANATE POTASSIUM
     Indication: Peritonitis
     Dosage: 2 DF, DOSE DESCRIPTION : 2 TIMES 1G / 200MG DRUG_INTERVAL_DOSAGE_UNIT_NUMBER : 1 DRUG_INTERVAL_DOSAG
     Route: 042
     Dates: start: 20210522, end: 20210522
  2. SUCCINYLCHOLINE [Suspect]
     Active Substance: SUCCINYLCHOLINE
     Indication: Endotracheal intubation
     Dosage: 100 MG
     Route: 042
     Dates: start: 20210522
  3. COMIRNATY (TOZINAMERAN) [Suspect]
     Active Substance: TOZINAMERAN
     Indication: COVID-19 immunisation
     Dosage: 1 DF
     Route: 030
     Dates: start: 20210519
  4. IOMERON [Suspect]
     Active Substance: IOMEPROL
     Indication: Peritonitis
     Dosage: 90 MG,DOSE DESCRIPTION : DRUG_INTERVAL_DOSAGE_UNIT_NUMBER : 1 DRUG_INTERVAL_DOSAGE_DEFINITION : {TOT
     Route: 042
     Dates: start: 20210522
  5. KETAMINE [Suspect]
     Active Substance: KETAMINE
     Indication: Induction of anaesthesia
     Dosage: 50 MG
     Route: 042
     Dates: start: 20210522
  6. ACETAMINOPHEN [Suspect]
     Active Substance: ACETAMINOPHEN
     Indication: Peritonitis
     Dosage: 2 DF,DOSE DESCRIPTION : 2 TIMES 1G / 200 MG DRUG_INTERVAL_DOSAGE_UNIT_NUMBER : 1 DRUG_INTERVAL_DOSAG
     Route: 042
     Dates: start: 20210522, end: 20210522
  7. PHLOROGLUCINOL [Suspect]
     Active Substance: PHLOROGLUCINOL
     Indication: Peritonitis
     Dosage: 80 MG,DOSE DESCRIPTION : DRUG_INTERVAL_DOSAGE_UNIT_NUMBER : 1 DRUG_INTERVAL_DOSAGE_DEFINITION : {TOT
     Route: 042
     Dates: start: 20210522
  8. PROPOFOL LIPURO [Suspect]
     Active Substance: PROPOFOL
     Indication: Induction of anaesthesia
     Dosage: 400 MG, DOSE DESCRIPTION : DRUG_INTERVAL_DOSAGE_UNIT_NUMBER : 1 DRUG_INTERVAL_DOSAGE_DEFINITION : {T
     Route: 042
     Dates: start: 20210522
  9. ROCURONIUM BROMIDE [Suspect]
     Active Substance: ROCURONIUM BROMIDE
     Indication: Endotracheal intubation
     Dosage: 50 MG, DOSE DESCRIPTION : DRUG_INTERVAL_DOSAGE_UNIT_NUMBER : 1 DRUG_INTERVAL_DOSAGE_DEFINITION : {TO
     Route: 042
     Dates: start: 20210522
  10. SUFENTANIL [Suspect]
     Active Substance: SUFENTANIL
     Indication: Induction of anaesthesia
     Dosage: 20 UG
     Route: 042
     Dates: start: 20210522
  11. SUCCINYLCHOLINE CHLORIDE [Suspect]
     Active Substance: SUCCINYLCHOLINE CHLORIDE
     Indication: Endotracheal intubation
     Dosage: 100 MG,DOSE DESCRIPTION : DRUG_INTERVAL_DOSAGE_UNIT_NUMBER : 1 DRUG_INTERVAL_DOSAGE_DEFINITION : {TO
     Route: 042
  12. TOZINAMERAN [Suspect]
     Active Substance: TOZINAMERAN
     Indication: COVID-19 immunisation
     Dosage: 1 DF, DOSE DESCRIPTION : D1 DRUG_INTERVAL_DOSAGE_UNIT_NUMBER : 1 DRUG_INTERVAL_DOSAGE_DEFINITION : {
     Route: 030
     Dates: start: 20210519

REACTIONS (1)
  - Cardiogenic shock [Fatal]

NARRATIVE: CASE EVENT DATE: 20210522
